FAERS Safety Report 15124686 (Version 3)
Quarter: 2018Q4

REPORT INFORMATION
  Report Type: Spontaneous
  Country: US (occurrence: US)
  Receive Date: 20180710
  Receipt Date: 20181120
  Transmission Date: 20190204
  Serious: No
  Sender: FDA-Public Use
  Company Number: US-PFIZER INC-2018275993

PATIENT
  Age: 62 Year
  Sex: Female
  Weight: 70 kg

DRUGS (2)
  1. IBRANCE [Suspect]
     Active Substance: PALBOCICLIB
     Indication: NEOPLASM MALIGNANT
     Dosage: 125 MG, CYCLIC (D1-21 Q 28 DAYS)
     Route: 048
     Dates: start: 20180628
  2. IBRANCE [Suspect]
     Active Substance: PALBOCICLIB
     Indication: BREAST CANCER FEMALE
     Dosage: 125 MG, CYCLIC (DAILY 1-21 OF 28 CYCLE)
     Route: 048
     Dates: start: 20180622

REACTIONS (7)
  - Constipation [Not Recovered/Not Resolved]
  - Mood swings [Unknown]
  - Impaired healing [Unknown]
  - Fatigue [Unknown]
  - Scratch [Unknown]
  - Diarrhoea [Unknown]
  - Blister [Unknown]

NARRATIVE: CASE EVENT DATE: 20180705
